FAERS Safety Report 5151041-0 (Version None)
Quarter: 2006Q4

REPORT INFORMATION
  Report Type: 
  Country: None (occurrence: None)
  Receive Date: 20061115
  Receipt Date: 20060306
  Transmission Date: 20070319
  Serious: Yes (Other)
  Sender: FDA-Public Use
  Company Number: US-AMGEN-KDL171867

PATIENT
  Sex: Female
  Weight: 79.5 kg

DRUGS (6)
  1. PROCRIT [Suspect]
     Indication: ANAEMIA
     Route: 065
  2. DILANTIN [Suspect]
     Route: 065
  3. COUMADIN [Concomitant]
  4. KEPPRA [Concomitant]
     Route: 065
  5. PENTASA [Concomitant]
     Indication: CROHN'S DISEASE
     Route: 065
  6. PREDNISONE TAB [Concomitant]
     Route: 065

REACTIONS (1)
  - APLASIA PURE RED CELL [None]
